FAERS Safety Report 14212096 (Version 1)
Quarter: 2017Q4

REPORT INFORMATION
  Report Type: Spontaneous
  Country: US (occurrence: US)
  Receive Date: 20171121
  Receipt Date: 20171121
  Transmission Date: 20180321
  Serious: Yes (Life-Threatening, Hospitalization)
  Sender: FDA-Public Use
  Company Number: None

PATIENT
  Sex: Female
  Weight: 47.7 kg

DRUGS (10)
  1. TRAMADOL. [Concomitant]
     Active Substance: TRAMADOL
  2. LOVENOX [Concomitant]
     Active Substance: ENOXAPARIN SODIUM
  3. BABY ASPIRIN [Concomitant]
     Active Substance: ASPIRIN
  4. MULTI VITAMIN [Concomitant]
     Active Substance: VITAMINS
  5. TYLENOL [Concomitant]
     Active Substance: ACETAMINOPHEN
  6. CUBICIN [Suspect]
     Active Substance: DAPTOMYCIN
     Indication: POST PROCEDURAL INFECTION
     Dates: start: 20171027, end: 20171114
  7. OXYCODONE [Concomitant]
     Active Substance: OXYCODONE
  8. ZOSYN [Concomitant]
     Active Substance: PIPERACILLIN SODIUM\TAZOBACTAM SODIUM
  9. IRON [Concomitant]
     Active Substance: IRON
  10. POTASSIUM [Concomitant]
     Active Substance: POTASSIUM

REACTIONS (12)
  - Acute respiratory distress syndrome [None]
  - Cognitive disorder [None]
  - Communication disorder [None]
  - Pyrexia [None]
  - Nausea [None]
  - Dyspnoea [None]
  - Pupils unequal [None]
  - Delirium [None]
  - Pneumonia [None]
  - Respiratory failure [None]
  - Device related infection [None]
  - Device failure [None]

NARRATIVE: CASE EVENT DATE: 20171114
